FAERS Safety Report 5251483-9 (Version None)
Quarter: 2007Q1

REPORT INFORMATION
  Report Type: 
  Country: None (occurrence: None)
  Receive Date: 20070228
  Receipt Date: 20060605
  Transmission Date: 20070707
  Serious: Yes (Life-Threatening, Hospitalization, Disabling, Other)
  Sender: FDA-Public Use
  Company Number: US-GLAXOSMITHKLINE-A0605834A

PATIENT
  Age: 12 Year
  Sex: Male

DRUGS (4)
  1. LAMICTAL [Suspect]
     Indication: EPILEPSY
     Dosage: 100MG TWICE PER DAY
     Route: 048
     Dates: start: 20050722, end: 20060501
  2. KEFLEX [Suspect]
     Dates: start: 20060501, end: 20060501
  3. KEPPRA [Concomitant]
  4. TRILEPTAL [Concomitant]

REACTIONS (4)
  - DERMATITIS BULLOUS [None]
  - PYREXIA [None]
  - SKIN EXFOLIATION [None]
  - TOXIC EPIDERMAL NECROLYSIS [None]
